FAERS Safety Report 5820165-4 (Version None)
Quarter: 2008Q3

REPORT INFORMATION
  Report Type: 
  Country: None (occurrence: None)
  Receive Date: 20080724
  Receipt Date: 20080715
  Transmission Date: 20090109
  Serious: Yes (Other)
  Sender: FDA-Public Use
  Company Number: PHHY2008CA14267

PATIENT
  Sex: Male

DRUGS (4)
  1. EXELON [Suspect]
     Indication: DEMENTIA ALZHEIMER'S TYPE
     Dosage: 1.5 MG DAILY
     Route: 048
     Dates: start: 20060914, end: 20061124
  2. ATIVAN [Concomitant]
     Dosage: 1 MG, QHS
  3. CELEBREX [Concomitant]
     Dosage: 100 MG, BID
  4. TYLENOL [Concomitant]
     Dosage: 650 MG, QID

REACTIONS (6)
  - AGITATION [None]
  - CHEST DISCOMFORT [None]
  - FATIGUE [None]
  - GASTRIC DISORDER [None]
  - HEADACHE [None]
  - SOMNOLENCE [None]
